FAERS Safety Report 7877728-4 (Version None)
Quarter: 2011Q4

REPORT INFORMATION
  Report Type: 
  Country: None (occurrence: None)
  Receive Date: 20111031
  Receipt Date: 20111031
  Transmission Date: 20120403
  Serious: No
  Sender: FDA-Public Use
  Company Number: None

PATIENT
  Age: 40 Year
  Sex: Female
  Weight: 63.049 kg

DRUGS (1)
  1. SYNTHROID [Suspect]
     Indication: POST PROCEDURAL HYPOTHYROIDISM
     Dosage: 1 PILL
     Route: 048
     Dates: start: 19980101, end: 20111028

REACTIONS (4)
  - DRUG INEFFECTIVE [None]
  - PRODUCT QUALITY ISSUE [None]
  - BLOOD THYROID STIMULATING HORMONE INCREASED [None]
  - FEELING ABNORMAL [None]
